FAERS Safety Report 4417319-0 (Version None)
Quarter: 2004Q3

REPORT INFORMATION
  Report Type: 
  Country: None (occurrence: None)
  Receive Date: 20040806
  Receipt Date: 20040709
  Transmission Date: 20050211
  Serious: Yes (Hospitalization)
  Sender: FDA-Public Use
  Company Number: US-GLAXOSMITHKLINE-A0517688A

PATIENT
  Age: 41 Year
  Sex: Male

DRUGS (2)
  1. WELLBUTRIN [Suspect]
     Dosage: 900MG PER DAY
     Route: 048
     Dates: start: 20040422, end: 20040425
  2. DEPAKOTE [Concomitant]
     Dosage: 1500MG PER DAY
     Route: 048

REACTIONS (3)
  - AGITATION [None]
  - DISORIENTATION [None]
  - MEDICATION ERROR [None]
